FAERS Safety Report 11043625 (Version 1)
Quarter: 2015Q2

REPORT INFORMATION
  Report Type: Spontaneous
  Country: FR (occurrence: FR)
  Receive Date: 20150417
  Receipt Date: 20150417
  Transmission Date: 20150821
  Serious: Yes (Hospitalization)
  Sender: FDA-Public Use
  Company Number: FR-ASTRAZENECA-2015SE34438

PATIENT
  Age: 70 Year
  Sex: Male

DRUGS (3)
  1. PROPRANOLOL [Concomitant]
     Active Substance: PROPRANOLOL\PROPRANOLOL HYDROCHLORIDE
     Dosage: FOR MORE THAN 3 YEARS
  2. GLIBENCLAMIDE [Concomitant]
     Active Substance: GLYBURIDE
     Dosage: FOR MORE THAN 3 YEARS
  3. EXENATIDE [Suspect]
     Active Substance: EXENATIDE
     Route: 058

REACTIONS (1)
  - Cholangitis [Recovered/Resolved]
